FAERS Safety Report 10159675 (Version 1)
Quarter: 2014Q2

REPORT INFORMATION
  Report Type: Spontaneous
  Country: US (occurrence: US)
  Receive Date: 20140508
  Receipt Date: 20140508
  Transmission Date: 20141212
  Serious: No
  Sender: FDA-Public Use
  Company Number: US-GLAXOSMITHKLINE-A1020533A

PATIENT
  Age: 61 Year
  Sex: Female
  Weight: 60 kg

DRUGS (8)
  1. TYKERB [Suspect]
     Indication: PRODUCT USED FOR UNKNOWN INDICATION
     Dosage: 1000MG PER DAY
     Route: 048
  2. XGEVA [Concomitant]
  3. HERCEPTIN [Concomitant]
  4. HYDROCODONE APAP [Concomitant]
  5. CALCIUM + D [Concomitant]
  6. ZOFRAN [Concomitant]
  7. PROMETHAZINE [Concomitant]
  8. ATIVAN [Concomitant]

REACTIONS (3)
  - Epistaxis [Unknown]
  - Diarrhoea [Unknown]
  - Decreased appetite [Unknown]
